FAERS Safety Report 5718640-6 (Version None)
Quarter: 2008Q2

REPORT INFORMATION
  Report Type: 
  Country: None (occurrence: None)
  Receive Date: 20080425
  Receipt Date: 20080414
  Transmission Date: 20081010
  Serious: Yes (Other)
  Sender: FDA-Public Use
  Company Number: US-PFIZER INC-2008028719

PATIENT
  Sex: Male
  Weight: 101.6 kg

DRUGS (3)
  1. SILDENAFIL CITRATE [Suspect]
     Indication: PULMONARY HYPERTENSION
     Route: 048
     Dates: start: 20080109, end: 20080401
  2. LOVENOX [Concomitant]
     Route: 058
  3. WARFARIN SODIUM [Concomitant]
     Route: 048
     Dates: start: 20071003, end: 20080401

REACTIONS (1)
  - VITREOUS HAEMORRHAGE [None]
